FAERS Safety Report 10442458 (Version 1)
Quarter: 2014Q3

REPORT INFORMATION
  Report Type: Spontaneous
  Country: US (occurrence: US)
  Receive Date: 20140909
  Receipt Date: 20140909
  Transmission Date: 20150326
  Serious: Yes (Death, Hospitalization)
  Sender: FDA-Public Use
  Company Number: US-B.I. PHARMACEUTICALS,INC./RIDGEFIELD-2014-BI-41810BP

PATIENT
  Age: 73 Year
  Sex: Male

DRUGS (1)
  1. PRADAXA [Suspect]
     Active Substance: DABIGATRAN ETEXILATE MESYLATE
     Indication: PRODUCT USED FOR UNKNOWN INDICATION
     Route: 065

REACTIONS (7)
  - Colitis ischaemic [Fatal]
  - Upper gastrointestinal haemorrhage [Fatal]
  - Hyperkalaemia [Unknown]
  - Hypotension [Unknown]
  - Syncope [Unknown]
  - Acute myocardial infarction [Fatal]
  - Renal failure acute [Fatal]

NARRATIVE: CASE EVENT DATE: 201210
